FAERS Safety Report 22246408 (Version 5)
Quarter: 2023Q2

REPORT INFORMATION
  Report Type: Spontaneous
  Country: US (occurrence: US)
  Receive Date: 20230424
  Receipt Date: 20230523
  Transmission Date: 20230722
  Serious: No
  Sender: FDA-Public Use
  Company Number: US-BIOGEN-2023BI01200378

PATIENT
  Age: 38 Year
  Sex: Female
  Weight: 58.6 kg

DRUGS (9)
  1. TYSABRI [Suspect]
     Active Substance: NATALIZUMAB
     Indication: Multiple sclerosis
     Dosage: 300 MG/15 ML
     Route: 050
     Dates: start: 20170424, end: 20171013
  2. TYSABRI [Suspect]
     Active Substance: NATALIZUMAB
     Route: 050
     Dates: start: 20190628, end: 20220216
  3. TYSABRI [Suspect]
     Active Substance: NATALIZUMAB
     Route: 050
     Dates: start: 20220330, end: 2023
  4. TYLENOL [Concomitant]
     Active Substance: ACETAMINOPHEN
     Indication: Premedication
     Dosage: 2 TABLETS 30 TO 60 MINUTES PRIOR TO EACH INFUSION
     Route: 050
  5. BENADRYL [Concomitant]
     Active Substance: DIPHENHYDRAMINE HYDROCHLORIDE
     Indication: Premedication
     Dosage: 1 TABLET BY ORAL ROUTE 30 TO 60 MINUTES PRIOR TO EACH INFUSION
     Route: 050
  6. NEURONTIN [Concomitant]
     Active Substance: GABAPENTIN
     Indication: Product used for unknown indication
     Dosage: 3 CAPS BY MOUTH ONCE DAILY AS NEEDED
     Route: 050
  7. KENALOG [Concomitant]
     Active Substance: TRIAMCINOLONE ACETONIDE
     Indication: Product used for unknown indication
     Dosage: APPLY APPLICATION TOPICALLY 2 TIMES A DAY TO AFFECTED AREA
     Route: 050
  8. DEPAKOTE [Concomitant]
     Active Substance: DIVALPROEX SODIUM
     Indication: Product used for unknown indication
     Dosage: TAKE 1 TABLET BY MOUTH 2 X DAY
     Route: 050
     Dates: end: 20230413
  9. DELTASONE [Concomitant]
     Active Substance: PREDNISONE
     Indication: Multiple sclerosis
     Dosage: TAKE 10 TABLETS BY MOUTH WITH BREAKFAST, THEN 10 TABLETS WITH LUNCH, THEN 5 TABLETS WITH DINNER (...
     Route: 050

REACTIONS (2)
  - Multiple sclerosis relapse [Unknown]
  - Therapeutic response shortened [Unknown]

NARRATIVE: CASE EVENT DATE: 20230401
